FAERS Safety Report 7527650-8 (Version None)
Quarter: 2011Q2

REPORT INFORMATION
  Report Type: 
  Country: None (occurrence: None)
  Receive Date: 20110527
  Receipt Date: 20110321
  Transmission Date: 20111010
  Serious: Yes (Other)
  Sender: FDA-Public Use
  Company Number: DE-001612

PATIENT
  Sex: Female

DRUGS (2)
  1. ANTIHISTAMINES [Concomitant]
  2. GALSULFASE (NAGLAZYME) [Suspect]
     Indication: MUCOPOLYSACCHARIDOSIS VI
     Dosage: (1 MG/KG 1X/WEEK, DOSE AND FREQUENCY NOT REPORTED INTRAVENOUS DRIP)
     Route: 041

REACTIONS (1)
  - CONVULSION [None]
